FAERS Safety Report 4728616-3 (Version None)
Quarter: 2005Q3

REPORT INFORMATION
  Report Type: 
  Country: None (occurrence: None)
  Receive Date: 20050729
  Receipt Date: 20050714
  Transmission Date: 20060218
  Serious: Yes (Hospitalization)
  Sender: FDA-Public Use
  Company Number: GRWYE834715JUL05

PATIENT
  Age: 48 Year
  Sex: Female
  Weight: 60 kg

DRUGS (5)
  1. ENBREL [Suspect]
     Indication: ANKYLOSING SPONDYLITIS
     Route: 058
     Dates: start: 20050301
  2. PREDNISOLONE [Concomitant]
     Route: 048
  3. IDEOS [Concomitant]
     Route: 048
  4. ACTONEL [Concomitant]
     Route: 048
  5. NEXIUM [Concomitant]
     Route: 048

REACTIONS (3)
  - ANAEMIA [None]
  - ANKYLOSING SPONDYLITIS [None]
  - CONDITION AGGRAVATED [None]
